FAERS Safety Report 23232218 (Version 2)
Quarter: 2024Q1

REPORT INFORMATION
  Report Type: Spontaneous
  Country: GB (occurrence: GB)
  Receive Date: 20231127
  Receipt Date: 20240126
  Transmission Date: 20240410
  Serious: Yes (Hospitalization, Disabling, Other)
  Sender: FDA-Public Use
  Company Number: GB-GILEAD-2023-0652220

PATIENT
  Age: 70 Year
  Sex: Male

DRUGS (1)
  1. YESCARTA [Suspect]
     Active Substance: AXICABTAGENE CILOLEUCEL
     Indication: Diffuse large B-cell lymphoma refractory
     Dosage: UNK
     Route: 065
     Dates: start: 20230815, end: 20230815

REACTIONS (3)
  - Blindness transient [Recovered/Resolved]
  - Immune effector cell-associated neurotoxicity syndrome [Recovered/Resolved]
  - Cytokine release syndrome [Recovered/Resolved]

NARRATIVE: CASE EVENT DATE: 20230816
